FAERS Safety Report 4402705-5 (Version None)
Quarter: 2004Q3

REPORT INFORMATION
  Report Type: 
  Country: None (occurrence: None)
  Receive Date: 20040720
  Receipt Date: 20040720
  Transmission Date: 20050211
  Serious: No
  Sender: FDA-Public Use
  Company Number: None

PATIENT
  Age: 17 Year
  Sex: Female
  Weight: 73.4827 kg

DRUGS (1)
  1. DEFEROXAMINE MESYLATE [Suspect]
     Indication: BLOOD IRON INCREASED
     Dosage: 2 GM SQ QHS [SEVERAL WEEKS]
     Route: 058

REACTIONS (3)
  - INFUSION SITE ERYTHEMA [None]
  - INFUSION SITE PAIN [None]
  - INJECTION SITE URTICARIA [None]
